FAERS Safety Report 7685715-4 (Version None)
Quarter: 2011Q3

REPORT INFORMATION
  Report Type: 
  Country: None (occurrence: None)
  Receive Date: 20110816
  Receipt Date: 20110810
  Transmission Date: 20111222
  Serious: Yes (Death, Life-Threatening)
  Sender: FDA-Public Use
  Company Number: JP-ROCHE-794338

PATIENT
  Sex: Male
  Weight: 83 kg

DRUGS (10)
  1. OLMESARTAN MEDOXOMIL [Concomitant]
     Route: 048
  2. MUCOSTA [Concomitant]
     Route: 048
  3. LORFENAMIN [Concomitant]
     Route: 048
  4. LASIX [Concomitant]
     Route: 048
  5. METHYCOBAL [Concomitant]
     Route: 048
  6. NORVASC [Concomitant]
     Route: 048
  7. TOCILIZUMAB [Suspect]
     Indication: RHEUMATOID ARTHRITIS
     Route: 041
     Dates: start: 20090604, end: 20100510
  8. TOCILIZUMAB [Suspect]
     Route: 041
     Dates: end: 20110707
  9. PREDNISOLONE [Concomitant]
     Route: 048
  10. LANSOPRAZOLE [Concomitant]
     Route: 048

REACTIONS (3)
  - BLOOD PRESSURE DECREASED [None]
  - HYPOXIA [None]
  - PNEUMONIA LEGIONELLA [None]
